FAERS Safety Report 4623418-0 (Version None)
Quarter: 2005Q1

REPORT INFORMATION
  Report Type: 
  Country: None (occurrence: None)
  Receive Date: 20050325
  Receipt Date: 20050311
  Transmission Date: 20050727
  Serious: Yes (Hospitalization, Other)
  Sender: FDA-Public Use
  Company Number: 200510079BCA

PATIENT
  Age: 73 Year
  Sex: Female
  Weight: 65 kg

DRUGS (10)
  1. GAMUNEX [Suspect]
     Indication: GUILLAIN-BARRE SYNDROME
     Dosage: SEE IMAGE
     Route: 042
     Dates: start: 20050121, end: 20050122
  2. GAMUNEX [Suspect]
     Indication: GUILLAIN-BARRE SYNDROME
     Dosage: SEE IMAGE
     Route: 042
     Dates: start: 20050122
  3. GAMUNEX [Suspect]
     Indication: GUILLAIN-BARRE SYNDROME
     Dosage: SEE IMAGE
     Route: 042
     Dates: start: 20050122
  4. GAMUNEX [Suspect]
     Indication: GUILLAIN-BARRE SYNDROME
     Dosage: SEE IMAGE
     Route: 042
     Dates: start: 20050123
  5. GAMUNEX [Suspect]
     Indication: GUILLAIN-BARRE SYNDROME
     Dosage: SEE IMAGE
     Route: 042
     Dates: start: 20050125
  6. GAMUNEX [Suspect]
     Indication: GUILLAIN-BARRE SYNDROME
     Dosage: SEE IMAGE
     Route: 042
     Dates: start: 20050125
  7. GAMUNEX [Suspect]
     Indication: GUILLAIN-BARRE SYNDROME
     Dosage: SEE IMAGE
     Route: 042
     Dates: start: 20050125
  8. GAMUNEX [Suspect]
  9. GAMUNEX [Suspect]
  10. GAMUNEX [Suspect]

REACTIONS (2)
  - HAEMOLYSIS [None]
  - MEDICATION ERROR [None]
